FAERS Safety Report 5279568-1 (Version None)
Quarter: 2007Q1

REPORT INFORMATION
  Report Type: 
  Country: None (occurrence: None)
  Receive Date: 20070328
  Receipt Date: 20070316
  Transmission Date: 20070707
  Serious: Yes (Other)
  Sender: FDA-Public Use
  Company Number: US-PFIZER INC-2007021945

PATIENT
  Sex: Male
  Weight: 81.6 kg

DRUGS (6)
  1. SUTENT [Suspect]
     Indication: RENAL CELL CARCINOMA STAGE UNSPECIFIED
  2. SUTENT [Suspect]
     Indication: LUNG NEOPLASM MALIGNANT
  3. ZYRTEC [Concomitant]
  4. BENADRYL [Concomitant]
  5. ATIVAN [Concomitant]
  6. MELATONIN [Concomitant]

REACTIONS (3)
  - CHEST DISCOMFORT [None]
  - HEART RATE INCREASED [None]
  - HYPERTENSION [None]
